FAERS Safety Report 9343286 (Version 1)
Quarter: 2013Q2

REPORT INFORMATION
  Report Type: Spontaneous
  Country: US (occurrence: US)
  Receive Date: 20130612
  Receipt Date: 20130612
  Transmission Date: 20140414
  Serious: No
  Sender: FDA-Public Use
  Company Number: US-009507513-1306USA004661

PATIENT
  Age: 45 Year
  Sex: Female

DRUGS (6)
  1. SAPHRIS [Suspect]
     Indication: SCHIZOAFFECTIVE DISORDER
     Dosage: 5 MG, QD
     Route: 060
     Dates: start: 201305
  2. SAPHRIS [Suspect]
     Indication: SCHIZOPHRENIA
  3. XANAX [Concomitant]
  4. PROZAC [Concomitant]
  5. COGENTIN [Concomitant]
  6. CLONIDINE [Concomitant]

REACTIONS (2)
  - Poor quality drug administered [Unknown]
  - Product solubility abnormal [Unknown]
